FAERS Safety Report 19730086 (Version 3)
Quarter: 2022Q2

REPORT INFORMATION
  Report Type: Report from Study
  Country: US (occurrence: US)
  Receive Date: 20210820
  Receipt Date: 20220526
  Transmission Date: 20220721
  Serious: Yes (Death)
  Sender: FDA-Public Use
  Company Number: US-GILEAD-2021-0544760

PATIENT
  Sex: Male

DRUGS (2)
  1. SACITUZUMAB GOVITECAN [Suspect]
     Active Substance: SACITUZUMAB GOVITECAN
     Indication: Transitional cell carcinoma
     Dosage: 1156 MG, CYCLICAL - D1, D8 Q 3 WEEKS
     Route: 042
     Dates: start: 20210129
  2. SACITUZUMAB GOVITECAN [Suspect]
     Active Substance: SACITUZUMAB GOVITECAN
     Dosage: 1121 MG, CYCLICAL - D1, D8 Q 3 WEEKS
     Route: 042
     Dates: start: 20210730

REACTIONS (1)
  - Cardiac arrest [Fatal]

NARRATIVE: CASE EVENT DATE: 20210811
